FAERS Safety Report 9321081 (Version 2)
Quarter: 2013Q2

REPORT INFORMATION
  Report Type: Report from Study
  Country: AU (occurrence: AU)
  Receive Date: 20130531
  Receipt Date: 20130611
  Transmission Date: 20140414
  Serious: Yes (Disabling, Other)
  Sender: FDA-Public Use
  Company Number: AU-ROCHE-1229395

PATIENT
  Sex: Male

DRUGS (1)
  1. RANIBIZUMAB [Suspect]
     Indication: AGE-RELATED MACULAR DEGENERATION
     Route: 050

REACTIONS (6)
  - Blindness [Unknown]
  - Retinal detachment [Unknown]
  - Post procedural haemorrhage [Unknown]
  - Depression [Unknown]
  - Vision blurred [Unknown]
  - No therapeutic response [Unknown]
